FAERS Safety Report 16540568 (Version 1)
Quarter: 2019Q3

REPORT INFORMATION
  Report Type: Spontaneous
  Country: US (occurrence: US)
  Receive Date: 20190707
  Receipt Date: 20190707
  Transmission Date: 20191004
  Serious: Yes (Disabling)
  Sender: FDA-Public Use
  Company Number: None

PATIENT
  Age: 40 Year
  Sex: Female
  Weight: 101.25 kg

DRUGS (8)
  1. EQUATE EYE ALLERGY RELIEF DROPS [Suspect]
     Active Substance: NAPHAZOLINE HYDROCHLORIDE\PHENIRAMINE MALEATE
     Indication: SEASONAL ALLERGY
     Dosage: ?          QUANTITY:1 DROP(S);?
     Route: 047
     Dates: start: 20120615, end: 20190707
  2. VITAMIN D3 [Concomitant]
     Active Substance: CHOLECALCIFEROL
  3. FIORICET [Concomitant]
     Active Substance: ACETAMINOPHEN\BUTALBITAL\CAFFEINE
  4. ALFALFA [Concomitant]
     Active Substance: ALFALFA
  5. CALCIUM [Concomitant]
     Active Substance: CALCIUM
  6. EQUATE COMFORT [Suspect]
     Active Substance: CARBOXYMETHYLCELLULOSE SODIUM\HYPROMELLOSES
     Indication: DRY EYE
     Dosage: ?          QUANTITY:1 DROP(S);?
     Route: 047
     Dates: start: 20120615, end: 20190707
  7. DAILY MULTIVITAMINS [Concomitant]
  8. FISH OIL [Concomitant]
     Active Substance: FISH OIL

REACTIONS (4)
  - Eye irritation [None]
  - Blepharospasm [None]
  - Recalled product administered [None]
  - Instillation site pain [None]

NARRATIVE: CASE EVENT DATE: 20190623
